FAERS Safety Report 6896500-5 (Version None)
Quarter: 2010Q3

REPORT INFORMATION
  Report Type: 
  Country: None (occurrence: None)
  Receive Date: 20100726
  Receipt Date: 20100712
  Transmission Date: 20110219
  Serious: Yes (Hospitalization, Other)
  Sender: FDA-Public Use
  Company Number: AEUSA201000272

PATIENT
  Age: 56 Year
  Sex: Female

DRUGS (22)
  1. PROLASTIN [Suspect]
     Indication: ALPHA-1 ANTI-TRYPSIN DEFICIENCY
     Dosage: IV
     Route: 042
  2. FUROSEMIDE [Suspect]
     Dosage: 40 MG; QD; PO
     Route: 048
  3. ZOLOFT [Suspect]
     Dosage: 100 MG; QD; PO
     Route: 048
  4. ALBUTEROL SULFATE AND IPRATROPIUM BROMIDE [Concomitant]
  5. ALPRAZOLAM [Concomitant]
  6. ASCORBIC ACID [Concomitant]
  7. BUPROPION HCL [Concomitant]
  8. GABAPENTIN [Concomitant]
  9. CALCIUM WITH VITAMIN D [Concomitant]
  10. FLUTICASONE W/SALMETEROL [Concomitant]
  11. GLUCOSAMINE/CHONDROITIN [Concomitant]
  12. GUAIFENESIN [Concomitant]
  13. IPRATROPIUM BROMIDE [Concomitant]
  14. LORATADINE [Concomitant]
  15. MAGNESIUM OXIDE [Concomitant]
  16. MONTELUKAST [Concomitant]
  17. MULTI-VITAMINS [Concomitant]
  18. NASONEX [Concomitant]
  19. LOVAZA [Concomitant]
  20. OMEPRAZOLE [Concomitant]
  21. SUCRALFATE [Concomitant]
  22. VERAPAMIL [Concomitant]

REACTIONS (17)
  - ARTHRALGIA [None]
  - BRONCHOALVEOLAR LAVAGE ABNORMAL [None]
  - BRONCHOSCOPY ABNORMAL [None]
  - C-REACTIVE PROTEIN INCREASED [None]
  - CUSHINGOID [None]
  - CUTANEOUS VASCULITIS [None]
  - DYSPNOEA [None]
  - FATIGUE [None]
  - HAEMOPTYSIS [None]
  - LEUKOCYTOCLASTIC VASCULITIS [None]
  - LEUKOCYTOSIS [None]
  - LUNG INFILTRATION [None]
  - NO THERAPEUTIC RESPONSE [None]
  - NORMOCHROMIC NORMOCYTIC ANAEMIA [None]
  - RALES [None]
  - RED BLOOD CELL SEDIMENTATION RATE INCREASED [None]
  - WHEEZING [None]
